FAERS Safety Report 16403938 (Version 1)
Quarter: 2019Q2

REPORT INFORMATION
  Report Type: Other
  Country: ES (occurrence: ES)
  Receive Date: 20190607
  Receipt Date: 20190607
  Transmission Date: 20190711
  Serious: Yes (Life-Threatening, Hospitalization, Other)
  Sender: FDA-Public Use
  Company Number: ES-ASPEN-GLO2019ES005433

PATIENT
  Age: 3 Year
  Sex: Female

DRUGS (11)
  1. IDARRUBICINA DOSA [Interacting]
     Active Substance: IDARUBICIN HYDROCHLORIDE
     Indication: ACUTE MYELOID LEUKAEMIA
     Dosage: (SHOP-LAM 2007)
     Route: 042
     Dates: start: 20160201, end: 20160401
  2. METOTREXATO (METHOTREXATE) [Interacting]
     Active Substance: METHOTREXATE
     Indication: STEM CELL TRANSPLANT
     Dosage: PAUTA CORTA 4 DOSIS
     Route: 065
  3. BUSULFANO ASPEN [Suspect]
     Active Substance: BUSULFAN
     Indication: BONE MARROW CONDITIONING REGIMEN
     Dosage: 4.8 MG/KG, QD
     Route: 042
     Dates: start: 20160608, end: 20160610
  4. FLUDARABINA [Interacting]
     Active Substance: FLUDARABINE PHOSPHATE
     Indication: BONE MARROW CONDITIONING REGIMEN
     Dosage: 50 MG/M2, QD
     Route: 042
     Dates: start: 20160608, end: 20160610
  5. TIMOGLOBULINA (LAPINE T-LYMPHOCYTE IMMUNE GLOBULIN) [Interacting]
     Active Substance: LAPINE T-LYMPHOCYTE IMMUNE GLOBULIN
     Indication: BONE MARROW CONDITIONING REGIMEN
     Dosage: 2 MG/KG, QD
     Route: 042
     Dates: start: 20160608, end: 20160610
  6. CICLOSPORINA [Interacting]
     Active Substance: CYCLOSPORINE
     Indication: STEM CELL TRANSPLANT
     Dosage: UNK
     Route: 042
     Dates: start: 20160614, end: 20161014
  7. MICOFENOLATO DE MOFETILA [Interacting]
     Active Substance: MYCOPHENOLATE MOFETIL
     Indication: STEM CELL TRANSPLANT
     Route: 065
  8. CYTOSINE ARABINOSIDE [Interacting]
     Active Substance: CYTARABINE
     Indication: ACUTE MYELOID LEUKAEMIA
     Dosage: (SHOP-LAM 2007)
     Route: 042
     Dates: start: 20160129, end: 201605
  9. MITOXANTRONA [Interacting]
     Active Substance: MITOXANTRONE HYDROCHLORIDE
     Indication: ACUTE MYELOID LEUKAEMIA
     Dosage: SHOP-LAM 2007
     Route: 042
  10. ETOPOSIDO [Interacting]
     Active Substance: ETOPOSIDE
     Indication: ACUTE MYELOID LEUKAEMIA
     Dosage: SHOP-LAM 2007
     Route: 042
     Dates: start: 20160201, end: 20160401
  11. ONCO TIOTEPA [Interacting]
     Active Substance: THIOTEPA
     Indication: BONE MARROW CONDITIONING REGIMEN
     Dosage: 5 MG/KG, QD
     Route: 042
     Dates: start: 20160608, end: 20160609

REACTIONS (1)
  - Post transplant lymphoproliferative disorder [Recovered/Resolved with Sequelae]

NARRATIVE: CASE EVENT DATE: 20160923
